FAERS Safety Report 7394217-4 (Version None)
Quarter: 2011Q2

REPORT INFORMATION
  Report Type: 
  Country: None (occurrence: None)
  Receive Date: 20110405
  Receipt Date: 20110117
  Transmission Date: 20111010
  Serious: Yes (Hospitalization)
  Sender: FDA-Public Use
  Company Number: DK-TYCO HEALTHCARE/MALLINCKRODT-T201100593

PATIENT
  Sex: Female
  Weight: 75 kg

DRUGS (1)
  1. OPTIRAY 350 [Suspect]
     Indication: UROGRAM
     Dosage: 40 ML, SINGLE
     Route: 042
     Dates: start: 20110110, end: 20110110

REACTIONS (1)
  - RASH [None]
